FAERS Safety Report 6464677-1 (Version None)
Quarter: 2009Q4

REPORT INFORMATION
  Report Type: 
  Country: None (occurrence: None)
  Receive Date: 20091201
  Receipt Date: 20091116
  Transmission Date: 20100525
  Serious: Yes (Hospitalization)
  Sender: FDA-Public Use
  Company Number: FR-BRISTOL-MYERS SQUIBB COMPANY-14875439

PATIENT
  Age: 84 Year
  Sex: Female

DRUGS (5)
  1. GLUCOPHAGE [Suspect]
     Indication: TYPE 2 DIABETES MELLITUS
     Route: 048
     Dates: end: 20080429
  2. ZOLOFT [Suspect]
     Route: 048
     Dates: end: 20080429
  3. ALDACTONE [Suspect]
     Route: 048
     Dates: end: 20080429
  4. PREVISCAN [Concomitant]
     Dosage: 1/4 -1/2 DOSAGE FORM IN ALTERNATE 1/2 DAYS
     Dates: end: 20080429
  5. AMLOR [Concomitant]
     Dosage: TAB
     Route: 048
     Dates: end: 20080429

REACTIONS (3)
  - FACIAL BONES FRACTURE [None]
  - FALL [None]
  - INAPPROPRIATE ANTIDIURETIC HORMONE SECRETION [None]
